FAERS Safety Report 6580891-9 (Version None)
Quarter: 2010Q1

REPORT INFORMATION
  Report Type: 
  Country: None (occurrence: None)
  Receive Date: 20100203
  Receipt Date: 20091118
  Transmission Date: 20100710
  Serious: Yes (Death)
  Sender: FDA-Public Use
  Company Number: US020247

PATIENT
  Age: 34 Year
  Sex: Female
  Weight: 76.6579 kg

DRUGS (7)
  1. FENTORA [Suspect]
     Indication: HEADACHE
     Dosage: (400 MCG), BU
     Route: 002
     Dates: start: 20070516, end: 20070517
  2. LUNESTA [Concomitant]
  3. VALIUM [Concomitant]
  4. TRAZODONE (TRAZODONE) (TABLETS) [Concomitant]
  5. CYMBALTA [Concomitant]
  6. AMBIEN [Concomitant]
  7. DHE (DIHYDROERGOTAMINE MESILATE) (INJECTION) [Concomitant]

REACTIONS (15)
  - ACCIDENTAL OVERDOSE [None]
  - CONDITION AGGRAVATED [None]
  - DRUG DISPENSING ERROR [None]
  - DRUG TOXICITY [None]
  - INAPPROPRIATE SCHEDULE OF DRUG ADMINISTRATION [None]
  - INCORRECT DOSE ADMINISTERED [None]
  - INSOMNIA [None]
  - MIDDLE INSOMNIA [None]
  - MIGRAINE [None]
  - NERVOUS SYSTEM DISORDER [None]
  - NERVOUSNESS [None]
  - NO THERAPEUTIC RESPONSE [None]
  - SOMNOLENCE [None]
  - SUICIDAL IDEATION [None]
  - UNRESPONSIVE TO STIMULI [None]
